FAERS Safety Report 8262833-3 (Version None)
Quarter: 2012Q2

REPORT INFORMATION
  Report Type: 
  Country: None (occurrence: None)
  Receive Date: 20120405
  Receipt Date: 20120327
  Transmission Date: 20120825
  Serious: No
  Sender: FDA-Public Use
  Company Number: US-ASTRAZENECA-2011SE32088

PATIENT
  Age: 65 Year
  Sex: Female

DRUGS (1)
  1. NEXIUM [Suspect]
     Route: 048

REACTIONS (8)
  - THROAT TIGHTNESS [None]
  - OESOPHAGEAL DILATATION [None]
  - VOMITING [None]
  - DRUG DOSE OMISSION [None]
  - APHAGIA [None]
  - REGURGITATION [None]
  - THROAT IRRITATION [None]
  - CHOKING [None]
